FAERS Safety Report 9012720 (Version 2)
Quarter: 2013Q1

REPORT INFORMATION
  Report Type: Spontaneous
  Country: JP (occurrence: JP)
  Receive Date: 20130114
  Receipt Date: 20130122
  Transmission Date: 20140127
  Serious: Yes (Death)
  Sender: FDA-Public Use
  Company Number: JP-B.I. PHARMACEUTICALS,INC./RIDGEFIELD-2013-BI-00438NB

PATIENT
  Age: 75 Year
  Sex: Female
  Weight: 55 kg

DRUGS (4)
  1. PRADAXA [Suspect]
     Indication: ATRIAL FIBRILLATION
     Dosage: 220 MG
     Route: 048
     Dates: end: 20121222
  2. BAYASPIRIN [Suspect]
     Dosage: 100 MG
     Route: 048
     Dates: end: 20121222
  3. ANCARON [Concomitant]
     Dosage: 100 MG
     Route: 048
  4. MAINTATE [Concomitant]
     Dosage: 5 MG
     Route: 048

REACTIONS (2)
  - Cerebral infarction [Fatal]
  - Drug effect incomplete [Unknown]
